FAERS Safety Report 14305601 (Version 1)
Quarter: 2017Q4

REPORT INFORMATION
  Report Type: Spontaneous
  Country: CN (occurrence: CN)
  Receive Date: 20171219
  Receipt Date: 20171219
  Transmission Date: 20180321
  Serious: Yes (Death)
  Sender: FDA-Public Use
  Company Number: PHHY2017CN183436

PATIENT
  Sex: Male

DRUGS (1)
  1. SANDIMMUN / NEORAL/ OL 27-400/ OLO 400 [Suspect]
     Active Substance: CYCLOSPORINE
     Indication: MYELOID LEUKAEMIA
     Dosage: UNK
     Route: 065

REACTIONS (2)
  - Bacterial infection [Fatal]
  - Multiple organ dysfunction syndrome [Fatal]
